FAERS Safety Report 9755580 (Version 1)
Quarter: 2013Q4

REPORT INFORMATION
  Report Type: Spontaneous
  Country: US (occurrence: US)
  Receive Date: 20131213
  Receipt Date: 20131213
  Transmission Date: 20140711
  Serious: No
  Sender: FDA-Public Use
  Company Number: US-GLAXOSMITHKLINE-A1020607A

PATIENT
  Age: 66 Year
  Sex: Male

DRUGS (3)
  1. NICODERM CQ 7MG [Suspect]
     Indication: EX-TOBACCO USER
  2. NICODERM CQ [Suspect]
     Indication: EX-TOBACCO USER
  3. NICODERM CQ 21MG [Suspect]
     Indication: EX-TOBACCO USER

REACTIONS (5)
  - Nausea [Not Recovered/Not Resolved]
  - Dizziness [Not Recovered/Not Resolved]
  - Overdose [Not Recovered/Not Resolved]
  - Insomnia [Recovered/Resolved with Sequelae]
  - Drug administration error [Unknown]
